FAERS Safety Report 12541831 (Version 1)
Quarter: 2016Q3

REPORT INFORMATION
  Report Type: Spontaneous
  Country: US (occurrence: US)
  Receive Date: 20160708
  Receipt Date: 20160708
  Transmission Date: 20161109
  Serious: No
  Sender: FDA-Public Use
  Company Number: US-PFIZER INC-2016309264

PATIENT
  Sex: Male
  Weight: 71 kg

DRUGS (3)
  1. NEURONTIN [Suspect]
     Active Substance: GABAPENTIN
     Dosage: 1000 MG, DAILY, ^^800 MG AT NIGHT AND 200 MG DURING THE DAY^^
  2. NEURONTIN [Suspect]
     Active Substance: GABAPENTIN
     Indication: NEURALGIA
     Dosage: 100 MG, DAILY
  3. NEURONTIN [Suspect]
     Active Substance: GABAPENTIN
     Dosage: ^400-500 MG^

REACTIONS (2)
  - Product use issue [Unknown]
  - Sleep disorder [Not Recovered/Not Resolved]
